FAERS Safety Report 17568046 (Version 1)
Quarter: 2020Q1

REPORT INFORMATION
  Report Type: Spontaneous
  Country: FR (occurrence: FR)
  Receive Date: 20200320
  Receipt Date: 20200320
  Transmission Date: 20200409
  Serious: Yes (Life-Threatening, Hospitalization)
  Sender: FDA-Public Use
  Company Number: FR-ASTRAZENECA-2020SE38656

PATIENT
  Age: 81 Year
  Sex: Female
  Weight: 37.5 kg

DRUGS (8)
  1. TAGRISSO [Suspect]
     Active Substance: OSIMERTINIB
     Indication: LUNG ADENOCARCINOMA
     Route: 048
     Dates: start: 20190701
  2. ULTIBRO BREEZHALER [Concomitant]
     Active Substance: GLYCOPYRRONIUM\INDACATEROL
     Route: 055
  3. ZYMA [Concomitant]
     Active Substance: PROBIOTICS NOS
     Route: 048
  4. VENTOLINE [Concomitant]
     Active Substance: ALBUTEROL
     Route: 055
  5. IRBESARTAN. [Concomitant]
     Active Substance: IRBESARTAN
     Dosage: 1 TABLET AT MORNING
     Route: 048
  6. CLOPIDOGREL [Concomitant]
     Active Substance: CLOPIDOGREL BISULFATE
     Dosage: 1 TABLET MIDDAY
     Route: 048
  7. DOLIPRANE [Concomitant]
     Active Substance: ACETAMINOPHEN
     Route: 048
  8. ALPHA-TOCOPHEROL (ACETATE OF) [Concomitant]
     Route: 048

REACTIONS (4)
  - Duodenal ulcer perforation [Recovering/Resolving]
  - Pneumoperitoneum [Recovering/Resolving]
  - Respiratory distress [Recovering/Resolving]
  - Chronic obstructive pulmonary disease [Recovering/Resolving]

NARRATIVE: CASE EVENT DATE: 202002
